FAERS Safety Report 7960307-8 (Version None)
Quarter: 2011Q4

REPORT INFORMATION
  Report Type: 
  Country: None (occurrence: None)
  Receive Date: 20111206
  Receipt Date: 20111206
  Transmission Date: 20120403
  Serious: Yes (Death, Life-Threatening, Hospitalization)
  Sender: FDA-Public Use
  Company Number: PHHO2010PE17653

PATIENT
  Sex: Female
  Weight: 38 kg

DRUGS (1)
  1. AFINITOR [Suspect]
     Indication: METASTATIC GASTRIC CANCER
     Dosage: 10 MG, QD
     Route: 048
     Dates: start: 20101110, end: 20101115

REACTIONS (24)
  - PNEUMONITIS [None]
  - TUBERCULOSIS [None]
  - NAUSEA [None]
  - COAGULATION TEST ABNORMAL [None]
  - MALAISE [None]
  - BACK PAIN [None]
  - GASTROINTESTINAL HAEMORRHAGE [None]
  - SUBCUTANEOUS NODULE [None]
  - MUCOSAL DRYNESS [None]
  - UROSEPSIS [None]
  - DECREASED APPETITE [None]
  - OBSTRUCTIVE AIRWAYS DISORDER [None]
  - CARDIAC MURMUR [None]
  - BLADDER DIVERTICULUM [None]
  - PALLOR [None]
  - DIARRHOEA [None]
  - ANAEMIA [None]
  - PYELONEPHRITIS ACUTE [None]
  - ESCHERICHIA INFECTION [None]
  - PYREXIA [None]
  - HAEMATOCHEZIA [None]
  - DYSPNOEA [None]
  - COUGH [None]
  - ABDOMINAL PAIN [None]
